FAERS Safety Report 9005250 (Version 4)
Quarter: 2013Q3

REPORT INFORMATION
  Report Type: Spontaneous
  Country: GB (occurrence: GB)
  Receive Date: 20130108
  Receipt Date: 20130813
  Transmission Date: 20140515
  Serious: Yes (Death, Other)
  Sender: FDA-Public Use
  Company Number: GB-ABBOTT-13P-167-1032869-00

PATIENT
  Age: 40 Year
  Sex: Male

DRUGS (2)
  1. HUMIRA [Suspect]
     Indication: PSORIASIS
     Route: 058
     Dates: start: 201201
  2. HUMIRA [Suspect]
     Route: 058
     Dates: start: 201201

REACTIONS (3)
  - Completed suicide [Fatal]
  - Mental disorder [Unknown]
  - Psoriasis [Unknown]
